FAERS Safety Report 9104380 (Version 1)
Quarter: 2013Q1

REPORT INFORMATION
  Report Type: Report from Study
  Country: FR (occurrence: FR)
  Receive Date: 20130220
  Receipt Date: 20130220
  Transmission Date: 20140127
  Serious: Yes (Hospitalization, Other)
  Sender: FDA-Public Use
  Company Number: FR-ROCHE-1189528

PATIENT
  Age: 43 None
  Sex: Male

DRUGS (14)
  1. TOCILIZUMAB [Suspect]
     Indication: RHEUMATOID ARTHRITIS
     Dosage: LAST INFUSION: 12 DEC 2011
     Route: 041
     Dates: start: 20110219
  2. TOCILIZUMAB [Suspect]
     Route: 065
  3. CORTANCYL [Concomitant]
     Route: 065
  4. CORTANCYL [Concomitant]
     Route: 065
  5. METHOTREXATE [Concomitant]
     Route: 065
     Dates: end: 20110516
  6. METHOTREXATE [Concomitant]
     Route: 065
  7. SPIRIVA [Concomitant]
  8. BECOTIDE [Concomitant]
     Dosage: DRUG MENTIONED AS BECOTIDE 250
     Route: 065
  9. ALLOPURINOL [Concomitant]
     Dosage: DRUG MENTIONED AS ALLOPURINOL 200
     Route: 065
  10. STAGID [Concomitant]
     Route: 065
  11. RAMIPRIL [Concomitant]
     Dosage: DRUG MENTIONED AS RAMIPRIL 2.5
     Route: 065
  12. LIPANTHYL [Concomitant]
     Dosage: DRUG MENTIONED AS LIPANTHYL 145
     Route: 065
  13. KETOPROFENE [Concomitant]
     Dosage: DRUG MENTIONED AS KETOPROFENE 100; 1-2 DF DAILY
     Route: 065
  14. OMEPRAZOLE [Concomitant]
     Dosage: DRUG MENTIONED AS OMEPRAZOLE 20
     Route: 065

REACTIONS (6)
  - Hepatocellular injury [Recovered/Resolved]
  - Drug-induced liver injury [Recovered/Resolved]
  - Rheumatoid arthritis [Recovered/Resolved]
  - Nail bed infection [Recovered/Resolved]
  - Erythema migrans [Recovered/Resolved]
  - Congestive cardiomyopathy [Recovered/Resolved]
